FAERS Safety Report 8816890 (Version 2)
Quarter: 2012Q4

REPORT INFORMATION
  Report Type: Spontaneous
  Country: JP (occurrence: None)
  Receive Date: 20121002
  Receipt Date: 20121022
  Transmission Date: 20130627
  Serious: Yes (Hospitalization)
  Sender: FDA-Public Use
  Company Number: TCI2012A05307

PATIENT
  Age: 79 Year
  Sex: Female

DRUGS (5)
  1. TAKEPRON OD [Suspect]
     Indication: GASTRIC ULCER
     Dosage: (15 mg, 1 in 1 D)
     Route: 048
     Dates: start: 20120815, end: 20120910
  2. TAKEPRON OD [Suspect]
     Indication: DUODENAL ULCER
     Dosage: (15 mg, 1 in 1 D)
     Route: 048
     Dates: start: 20120815, end: 20120910
  3. TAKEPRON OD [Suspect]
     Indication: GASTRIC ULCER
  4. TAKEPRON OD [Suspect]
     Indication: DUODENAL ULCER
  5. SULPERAZON [Concomitant]

REACTIONS (3)
  - Ileus paralytic [None]
  - Colitis microscopic [None]
  - Diarrhoea [None]
